FAERS Safety Report 7028860-9 (Version None)
Quarter: 2010Q4

REPORT INFORMATION
  Report Type: 
  Country: None (occurrence: None)
  Receive Date: 20101005
  Receipt Date: 20101004
  Transmission Date: 20110411
  Serious: Yes (Hospitalization, Other)
  Sender: FDA-Public Use
  Company Number: PL-BRISTOL-MYERS SQUIBB COMPANY-15255383

PATIENT
  Age: 65 Year
  Sex: Male
  Weight: 50 kg

DRUGS (3)
  1. CETUXIMAB [Suspect]
     Indication: GASTROOESOPHAGEAL CANCER
     Dosage: CETUXIMAB 5MG/M2, 3RD ADMINISTRATION IN TOTAL
     Route: 042
     Dates: start: 20100621, end: 20100705
  2. CISPLATIN [Suspect]
     Indication: GASTROOESOPHAGEAL CANCER
     Dosage: ON DAY 1 OF CYCLE; RECENT INF 16AUG10
     Route: 042
     Dates: start: 20100621
  3. XELODA [Suspect]
     Indication: GASTROOESOPHAGEAL CANCER
     Dosage: ON DAY 1-15; RECENT INF 16AUG10
     Route: 048
     Dates: start: 20100621

REACTIONS (2)
  - ASCITES [None]
  - HYPONATRAEMIA [None]
